FAERS Safety Report 6748429-0 (Version None)
Quarter: 2010Q2

REPORT INFORMATION
  Report Type: 
  Country: None (occurrence: None)
  Receive Date: 20100601
  Receipt Date: 20100601
  Transmission Date: 20101027
  Serious: Yes (Hospitalization)
  Sender: FDA-Public Use
  Company Number: None

PATIENT
  Sex: Male
  Weight: 13.1543 kg

DRUGS (2)
  1. MOTRIN [Suspect]
     Indication: PYREXIA
     Dosage: 5 ML EVERY 6-8 HOURS PO
     Route: 048
     Dates: start: 20100403, end: 20100406
  2. TYLENOL NOT SURE WHAT THIS MEANS MCNEIL [Suspect]
     Indication: PYREXIA
     Dosage: 5ML EVERY 4-6 HOURS PO
     Route: 048

REACTIONS (3)
  - ABDOMINAL PAIN UPPER [None]
  - DIARRHOEA [None]
  - VOMITING [None]
